FAERS Safety Report 6366484-7 (Version None)
Quarter: 2009Q3

REPORT INFORMATION
  Report Type: 
  Country: None (occurrence: None)
  Receive Date: 20090915
  Receipt Date: 20090908
  Transmission Date: 20100115
  Serious: Yes (Other)
  Sender: FDA-Public Use
  Company Number: CHPA2009CA18357

PATIENT
  Age: 44 Year
  Sex: Male

DRUGS (1)
  1. TRANSDERM VOYAGER [Suspect]
     Indication: NAUSEA
     Dosage: 1.5 MG, TRANSDERMAL
     Route: 062
     Dates: start: 20090101

REACTIONS (5)
  - APPLICATION SITE RASH [None]
  - CONVULSION [None]
  - MEDICATION RESIDUE [None]
  - PRODUCT QUALITY ISSUE [None]
  - WRONG TECHNIQUE IN DRUG USAGE PROCESS [None]
